FAERS Safety Report 10035693 (Version 1)
Quarter: 2014Q1

REPORT INFORMATION
  Report Type: Report from Study
  Country: FI (occurrence: FI)
  Receive Date: 20140325
  Receipt Date: 20140325
  Transmission Date: 20141002
  Serious: Yes (Other)
  Sender: FDA-Public Use
  Company Number: PHHY2014FI034918

PATIENT
  Age: 24 Year
  Sex: Female

DRUGS (1)
  1. LEPONEX [Suspect]
     Dosage: UNK

REACTIONS (3)
  - Upper respiratory tract infection [Unknown]
  - Neutropenia [Not Recovered/Not Resolved]
  - C-reactive protein abnormal [Recovered/Resolved]
